FAERS Safety Report 6924212-8 (Version None)
Quarter: 2010Q3

REPORT INFORMATION
  Report Type: 
  Country: None (occurrence: None)
  Receive Date: 20100812
  Receipt Date: 20100812
  Transmission Date: 20110219
  Serious: Yes (Other)
  Sender: FDA-Public Use
  Company Number: None

PATIENT
  Age: 57 Year
  Sex: Female
  Weight: 54.4316 kg

DRUGS (1)
  1. ZANTAX 150MG BOEHRINGER INGELHEIM [Suspect]
     Indication: GASTRIC ULCER
     Dosage: 150MG 2X DAY PO
     Route: 048
     Dates: start: 20100810, end: 20100811

REACTIONS (1)
  - HEADACHE [None]
